FAERS Safety Report 4411005-9 (Version None)
Quarter: 2004Q3

REPORT INFORMATION
  Report Type: 
  Country: None (occurrence: None)
  Receive Date: 20040729
  Receipt Date: 20040722
  Transmission Date: 20050211
  Serious: Yes (Hospitalization)
  Sender: FDA-Public Use
  Company Number: US-BRISTOL-MYERS SQUIBB COMPANY-12650172

PATIENT
  Age: 73 Year
  Sex: Male
  Weight: 77 kg

DRUGS (7)
  1. ERBITUX [Suspect]
     Indication: COLON CANCER
     Route: 042
     Dates: start: 20040322, end: 20040322
  2. ALOXI [Concomitant]
     Indication: PREMEDICATION
     Route: 042
     Dates: start: 20040322, end: 20040322
  3. ATROPINE [Concomitant]
     Indication: PREMEDICATION
     Route: 042
     Dates: start: 20040322, end: 20040322
  4. BENADRYL [Concomitant]
     Indication: PREMEDICATION
     Route: 042
     Dates: start: 20040322, end: 20040322
  5. DECADRON [Concomitant]
     Indication: PREMEDICATION
     Route: 042
     Dates: start: 20040322, end: 20040322
  6. CAMPTOSAR [Concomitant]
     Dates: start: 20040322, end: 20040322
  7. CARDURA [Concomitant]
     Dates: start: 20040303, end: 20040426

REACTIONS (2)
  - CORONARY ARTERY OCCLUSION [None]
  - MYOCARDIAL INFARCTION [None]
